FAERS Safety Report 7762023-4 (Version None)
Quarter: 2011Q3

REPORT INFORMATION
  Report Type: 
  Country: None (occurrence: None)
  Receive Date: 20110919
  Receipt Date: 20110919
  Transmission Date: 20111222
  Serious: Yes (Hospitalization)
  Sender: FDA-Public Use
  Company Number: None

PATIENT
  Sex: Male
  Weight: 49.6 kg

DRUGS (2)
  1. FLUOROURACIL [Suspect]
     Dosage: 1580 MG
     Dates: end: 20110902
  2. CISPLATIN [Suspect]
     Dosage: 158 MG
     Dates: end: 20110829

REACTIONS (2)
  - NEUTROPHIL COUNT DECREASED [None]
  - PNEUMONIA [None]
